FAERS Safety Report 8059341-1 (Version None)
Quarter: 2012Q1

REPORT INFORMATION
  Report Type: 
  Country: None (occurrence: None)
  Receive Date: 20120120
  Receipt Date: 20120120
  Transmission Date: 20120608
  Serious: No
  Sender: FDA-Public Use
  Company Number: None

PATIENT
  Sex: Female
  Weight: 66.224 kg

DRUGS (1)
  1. SERTRALINE HYDROCHLORIDE [Suspect]
     Indication: ANXIETY
     Dosage: 30 - 50MG TABLETS
     Dates: start: 20111204, end: 20120119

REACTIONS (9)
  - CONFUSIONAL STATE [None]
  - INSOMNIA [None]
  - HEADACHE [None]
  - HALLUCINATION [None]
  - DISTURBANCE IN ATTENTION [None]
  - DECREASED APPETITE [None]
  - DRY MOUTH [None]
  - HYPERHIDROSIS [None]
  - PYREXIA [None]
